FAERS Safety Report 10469079 (Version 1)
Quarter: 2014Q3

REPORT INFORMATION
  Report Type: Spontaneous
  Country: US (occurrence: None)
  Receive Date: 20140905
  Receipt Date: 20140905
  Transmission Date: 20150326
  Serious: Yes (Hospitalization)
  Sender: FDA-Public Use
  Company Number: C-14-090

PATIENT
  Age: 41 Year
  Sex: Female

DRUGS (1)
  1. OXYCODONE [Suspect]
     Active Substance: OXYCODONE
     Route: 055

REACTIONS (7)
  - Nasal septum disorder [None]
  - Swelling [None]
  - Leukocytosis [None]
  - Nasal necrosis [None]
  - Tenderness [None]
  - Purulence [None]
  - Sinusitis [None]
